FAERS Safety Report 21760402 (Version 1)
Quarter: 2022Q4

REPORT INFORMATION
  Report Type: Spontaneous
  Country: US (occurrence: None)
  Receive Date: 20221220
  Receipt Date: 20221220
  Transmission Date: 20230113
  Serious: No
  Sender: FDA-Public Use
  Company Number: None

PATIENT
  Age: 46 Year
  Sex: Female
  Weight: 63 kg

DRUGS (1)
  1. METHYLPHENIDATE [Suspect]
     Active Substance: METHYLPHENIDATE
     Indication: Attention deficit hyperactivity disorder
     Dosage: OTHER QUANTITY : 1 TABLET(S);?FREQUENCY : TWICE A DAY;?
     Route: 048
     Dates: start: 20221130, end: 20221220

REACTIONS (7)
  - Manufacturing issue [None]
  - Product quality issue [None]
  - Abdominal pain [None]
  - Paraesthesia [None]
  - Dizziness [None]
  - Anxiety [None]
  - Presyncope [None]

NARRATIVE: CASE EVENT DATE: 20221220
